FAERS Safety Report 8816869 (Version 1)
Quarter: 2012Q4

REPORT INFORMATION
  Report Type: Spontaneous
  Country: US (occurrence: None)
  Receive Date: 20121002
  Receipt Date: 20121002
  Transmission Date: 20130627
  Serious: Yes (Hospitalization)
  Sender: FDA-Public Use
  Company Number: None

PATIENT
  Age: 63 Year
  Sex: Male
  Weight: 101.6 kg

DRUGS (24)
  1. OXALIPLATIN [Suspect]
     Indication: PANCREATIC CANCER
     Dates: start: 20120801
  2. OXALIPLATIN [Suspect]
     Indication: PANCREATIC CANCER
     Dates: start: 20120815
  3. OXALIPLATIN [Suspect]
     Indication: PANCREATIC CANCER
     Dates: start: 20120904
  4. IRINOTECAN [Suspect]
     Dates: start: 20120801
  5. IRINOTECAN [Suspect]
     Dates: start: 20120815
  6. IRINOTECAN [Suspect]
     Dates: start: 20120904
  7. 5-FU [Suspect]
     Dates: start: 20120801
  8. 5-FU [Suspect]
     Dates: start: 20120815
  9. 5-FU [Suspect]
     Dates: start: 20120904
  10. LEUCOVORIN [Suspect]
     Dates: start: 20120801
  11. LEUCOVORIN [Suspect]
     Dates: start: 20120815
  12. LEUCOVORIN [Suspect]
     Dates: start: 20120904
  13. ASPIRIN [Concomitant]
  14. CRESTOR [Concomitant]
  15. LIDODERM CREAM [Concomitant]
  16. LORAZEPAM [Concomitant]
  17. MAGNESIUM OXIDE [Concomitant]
  18. MULTIVITAMIN [Concomitant]
  19. NEUPOGEN [Concomitant]
  20. OMEPRAZOLE [Concomitant]
  21. OXYCODONE APAP [Concomitant]
  22. PLAVIX [Concomitant]
  23. PROCHLORPERAZINE [Concomitant]
  24. SPIRONOLACTONE [Concomitant]

REACTIONS (4)
  - Febrile neutropenia [None]
  - Anaemia [None]
  - Metastases to liver [None]
  - Liver abscess [None]
